FAERS Safety Report 12205630 (Version 1)
Quarter: 2016Q1

REPORT INFORMATION
  Report Type: Spontaneous
  Country: JP (occurrence: JP)
  Receive Date: 20160323
  Receipt Date: 20160323
  Transmission Date: 20160526
  Serious: Yes (Death, Other)
  Sender: FDA-Public Use
  Company Number: JP-PFIZER INC-2016108342

PATIENT
  Age: 71 Year
  Sex: Male

DRUGS (1)
  1. SUTENT [Suspect]
     Active Substance: SUNITINIB MALATE
     Indication: RENAL CANCER
     Dosage: 50 MG MG/DAY ON A REGIMEN OF 2-WEEK TREATMENT AND AND 1-WEEK INTERRUPTION
     Route: 048
     Dates: start: 20160206

REACTIONS (10)
  - Cancer pain [Recovering/Resolving]
  - Cardiac failure [Unknown]
  - Urinary tract infection [Unknown]
  - Cardiac arrest [Unknown]
  - Weight increased [Unknown]
  - Liver disorder [Recovering/Resolving]
  - Death [Fatal]
  - Ejection fraction decreased [Recovered/Resolved]
  - Hypertension [Recovering/Resolving]
  - Pyrexia [Unknown]

NARRATIVE: CASE EVENT DATE: 201602
